FAERS Safety Report 21657953 (Version 2)
Quarter: 2022Q4

REPORT INFORMATION
  Report Type: Spontaneous
  Country: CA (occurrence: CA)
  Receive Date: 20221129
  Receipt Date: 20221223
  Transmission Date: 20230112
  Serious: Yes (Other)
  Sender: FDA-Public Use
  Company Number: CA-Hikma Pharmaceuticals USA Inc.-CA-H14001-22-03036

PATIENT
  Age: 76 Year
  Sex: Female

DRUGS (1)
  1. SUCCINYLCHOLINE CHLORIDE [Suspect]
     Active Substance: SUCCINYLCHOLINE CHLORIDE
     Indication: Product used for unknown indication
     Dosage: UNKNOWN
     Route: 065

REACTIONS (7)
  - Seizure [Unknown]
  - Muscle spasms [Unknown]
  - Tachycardia [Unknown]
  - Hypertension [Unknown]
  - Respiratory arrest [Unknown]
  - Hypotonia [Unknown]
  - Somnolence [Unknown]

NARRATIVE: CASE EVENT DATE: 20221025
